FAERS Safety Report 6840634-8 (Version None)
Quarter: 2010Q3

REPORT INFORMATION
  Report Type: 
  Country: None (occurrence: None)
  Receive Date: 20100714
  Receipt Date: 20100701
  Transmission Date: 20110219
  Serious: Yes (Hospitalization)
  Sender: FDA-Public Use
  Company Number: SE-ELI_LILLY_AND_COMPANY-SE201005005955

PATIENT
  Age: 25 Year
  Sex: Female

DRUGS (7)
  1. CYMBALTA [Suspect]
     Indication: DEPRESSION
     Dosage: 30 MG, DAILY (1/D)
     Route: 065
     Dates: start: 20100323, end: 20100407
  2. CYMBALTA [Suspect]
     Dosage: 60 MG, DAILY (1/D)
     Route: 065
     Dates: start: 20100407
  3. CYMBALTA [Suspect]
     Dosage: 30 MG, DAILY (1/D)
     Route: 065
  4. CYMBALTA [Suspect]
     Dosage: 30 MG, OTHER (EVERY SECOND DAY)
     Route: 065
  5. CYMBALTA [Suspect]
     Dosage: 30 MG, UNKNOWN
     Route: 065
  6. NAPROXEN [Concomitant]
     Indication: DYSMENORRHOEA
     Dosage: UNK, AS NEEDED
     Route: 065
  7. ROACUTAN [Concomitant]
     Dosage: UNK, UNKNOWN
     Route: 065
     Dates: end: 20070101

REACTIONS (7)
  - DIZZINESS [None]
  - HYPERHIDROSIS [None]
  - INFECTION [None]
  - NAUSEA [None]
  - PALPITATIONS [None]
  - PYREXIA [None]
  - TACHYCARDIA [None]
